FAERS Safety Report 8217412-0 (Version None)
Quarter: 2012Q1

REPORT INFORMATION
  Report Type: 
  Country: None (occurrence: None)
  Receive Date: 20120313
  Receipt Date: 20120228
  Transmission Date: 20120608
  Serious: Yes (Death)
  Sender: FDA-Public Use
  Company Number: OXYB20120005

PATIENT
  Age: 84 Year
  Sex: Female

DRUGS (2)
  1. OXYBUTYNIN CHLORIDE [Suspect]
     Indication: STRESS URINARY INCONTINENCE
     Dosage: UNK
  2. ANALGESICS (ANALGESICS) [Concomitant]

REACTIONS (4)
  - FALL [None]
  - EXCESSIVE EXERCISE [None]
  - ACCIDENTAL DEATH [None]
  - HYPERTHERMIA [None]
